FAERS Safety Report 10200868 (Version 2)
Quarter: 2014Q2

REPORT INFORMATION
  Report Type: Spontaneous
  Country: DE (occurrence: DE)
  Receive Date: 20140528
  Receipt Date: 20140606
  Transmission Date: 20141212
  Serious: Yes (Other)
  Sender: FDA-Public Use
  Company Number: DE-JNJFOC-20140515213

PATIENT
  Age: 64 Year
  Sex: Female
  Weight: 80 kg

DRUGS (11)
  1. XARELTO [Suspect]
     Indication: CEREBROVASCULAR ACCIDENT PROPHYLAXIS
     Route: 048
     Dates: start: 20130821, end: 20140515
  2. XARELTO [Suspect]
     Indication: ATRIAL FIBRILLATION
     Route: 048
     Dates: start: 20130821, end: 20140515
  3. XARELTO [Suspect]
     Indication: ATRIAL FIBRILLATION
     Route: 048
     Dates: start: 20130821, end: 20140515
  4. AZITHROMYCIN [Interacting]
     Indication: PRODUCT USED FOR UNKNOWN INDICATION
     Route: 065
     Dates: start: 20140424, end: 20140427
  5. NOVALGIN [Interacting]
     Indication: PRODUCT USED FOR UNKNOWN INDICATION
     Route: 065
     Dates: start: 20140424, end: 20140505
  6. SPIRONOLACTON [Concomitant]
  7. HCT [Concomitant]
     Route: 065
  8. AMLODIPINE [Concomitant]
     Route: 065
  9. VENLAFAXINE [Concomitant]
     Route: 065
  10. BISOPROLOL [Concomitant]
     Route: 065
  11. L - THYROXIN [Concomitant]
     Route: 065

REACTIONS (4)
  - Paranasal sinus haematoma [Recovering/Resolving]
  - Periorbital haemorrhage [Recovering/Resolving]
  - Otitis media [Recovering/Resolving]
  - Drug interaction [Unknown]
